FAERS Safety Report 5424794-1 (Version None)
Quarter: 2007Q3

REPORT INFORMATION
  Report Type: 
  Country: None (occurrence: None)
  Receive Date: 20070824
  Receipt Date: 20070815
  Transmission Date: 20080115
  Serious: Yes (Hospitalization)
  Sender: FDA-Public Use
  Company Number: US-AMGEN-KDL237888

PATIENT
  Sex: Female

DRUGS (5)
  1. ENBREL [Suspect]
     Indication: PSORIASIS
     Route: 058
     Dates: start: 20070629
  2. NEURONTIN [Suspect]
     Dates: start: 20070808, end: 20070809
  3. LORTAB [Suspect]
     Dates: start: 20070808, end: 20070809
  4. IBUPROFEN [Concomitant]
     Dates: start: 20070806, end: 20070807
  5. VALTREX [Concomitant]
     Dates: start: 20070808, end: 20070813

REACTIONS (8)
  - ABDOMINAL PAIN [None]
  - ACUTE PRERENAL FAILURE [None]
  - BACK PAIN [None]
  - BLISTER [None]
  - FAECES DISCOLOURED [None]
  - HEADACHE [None]
  - HERPES ZOSTER [None]
  - NAUSEA [None]
